FAERS Safety Report 25900580 (Version 1)
Quarter: 2025Q4

REPORT INFORMATION
  Report Type: Spontaneous
  Country: EU (occurrence: EU)
  Receive Date: 20251009
  Receipt Date: 20251009
  Transmission Date: 20260118
  Serious: Yes (Hospitalization, Other)
  Sender: ASTELLAS
  Company Number: EU-ASTELLAS-2025-AER-054326

PATIENT
  Age: 50 Year
  Sex: Male

DRUGS (2)
  1. GILTERITINIB [Suspect]
     Active Substance: GILTERITINIB
     Indication: Acute myeloid leukaemia recurrent
     Route: 050
     Dates: start: 20211208, end: 202201
  2. GILTERITINIB [Suspect]
     Active Substance: GILTERITINIB
     Dosage: RESTARTED
     Route: 050
     Dates: start: 20220110

REACTIONS (5)
  - Bone marrow failure [Unknown]
  - Pneumonia [Unknown]
  - Escherichia sepsis [Unknown]
  - Pathogen resistance [Unknown]
  - General physical health deterioration [Unknown]

NARRATIVE: CASE EVENT DATE: 20220215
